FAERS Safety Report 14215009 (Version 1)
Quarter: 2017Q4

REPORT INFORMATION
  Report Type: Spontaneous
  Country: US (occurrence: US)
  Receive Date: 20171122
  Receipt Date: 20171122
  Transmission Date: 20180321
  Serious: Yes (Other)
  Sender: FDA-Public Use
  Company Number: US-ROCHE-1992667

PATIENT
  Sex: Female

DRUGS (1)
  1. HERCEPTIN [Suspect]
     Active Substance: TRASTUZUMAB
     Indication: BREAST CANCER
     Dosage: NO
     Route: 065
     Dates: start: 20170908

REACTIONS (5)
  - Chills [Unknown]
  - Nausea [Unknown]
  - Pyrexia [Unknown]
  - Back pain [Unknown]
  - Infusion related reaction [Unknown]
